FAERS Safety Report 15682984 (Version 1)
Quarter: 2018Q4

REPORT INFORMATION
  Report Type: Spontaneous
  Country: FR (occurrence: FR)
  Receive Date: 20181203
  Receipt Date: 20181203
  Transmission Date: 20190205
  Serious: Yes (Hospitalization)
  Sender: FDA-Public Use
  Company Number: FR-ABBVIE-18K-056-2577703-00

PATIENT
  Sex: Male

DRUGS (5)
  1. PLAVIX [Concomitant]
     Active Substance: CLOPIDOGREL BISULFATE
     Indication: PRODUCT USED FOR UNKNOWN INDICATION
  2. VENCLYXTO [Suspect]
     Active Substance: VENETOCLAX
     Indication: CHRONIC LYMPHOCYTIC LEUKAEMIA
     Route: 048
     Dates: start: 20170209
  3. GANFORT [Concomitant]
     Active Substance: BIMATOPROST\TIMOLOL
     Indication: PRODUCT USED FOR UNKNOWN INDICATION
  4. LEDERFOLINE [Concomitant]
     Active Substance: LEUCOVORIN CALCIUM
     Indication: PRODUCT USED FOR UNKNOWN INDICATION
  5. BACTRIM [Concomitant]
     Active Substance: SULFAMETHOXAZOLE\TRIMETHOPRIM
     Indication: PRODUCT USED FOR UNKNOWN INDICATION

REACTIONS (3)
  - Neutropenia [Recovered/Resolved]
  - Toxic skin eruption [Recovered/Resolved]
  - Autoimmune haemolytic anaemia [Recovering/Resolving]

NARRATIVE: CASE EVENT DATE: 20170309
